FAERS Safety Report 13622745 (Version 1)
Quarter: 2017Q2

REPORT INFORMATION
  Report Type: Spontaneous
  Country: PT (occurrence: PT)
  Receive Date: 20170607
  Receipt Date: 20170607
  Transmission Date: 20170830
  Serious: Yes (Other)
  Sender: FDA-Public Use
  Company Number: PT-009507513-1706PRT000440

PATIENT
  Age: 37 Year
  Sex: Male

DRUGS (2)
  1. ISENTRESS [Suspect]
     Active Substance: RALTEGRAVIR POTASSIUM
     Indication: IMMUNISATION
     Dosage: 400 MG, Q12H
     Route: 048
     Dates: start: 20170402, end: 2017
  2. TRUVADA [Suspect]
     Active Substance: EMTRICITABINE\TENOFOVIR DISOPROXIL FUMARATE
     Indication: IMMUNISATION
     Dosage: UNK
     Dates: start: 20170404

REACTIONS (6)
  - Respiratory tract infection [Recovered/Resolved]
  - Headache [Recovered/Resolved]
  - Fatigue [Recovered/Resolved]
  - Suicidal ideation [Recovered/Resolved]
  - Diarrhoea [Recovered/Resolved]
  - Depressive symptom [Recovered/Resolved]

NARRATIVE: CASE EVENT DATE: 20170402
